FAERS Safety Report 5916942-1 (Version None)
Quarter: 2008Q4

REPORT INFORMATION
  Report Type: 
  Country: None (occurrence: None)
  Receive Date: 20081009
  Receipt Date: 20080924
  Transmission Date: 20090506
  Serious: Yes (Hospitalization)
  Sender: FDA-Public Use
  Company Number: 2008002496

PATIENT
  Age: 62 Year
  Sex: Male
  Weight: 68 kg

DRUGS (8)
  1. ERLOTINIB (ERLOTINIB) (TABLET) ERLOTINIB) [Suspect]
     Indication: OESOPHAGEAL CARCINOMA
     Dosage: (100 MG, QD) , ORAL
     Route: 048
     Dates: start: 20080820
  2. BEVACIZUMAB (INJECTION FOR INFUSION) [Suspect]
     Indication: OESOPHAGEAL CARCINOMA
     Dosage: (15 MG) , INTRAVENOUS
     Route: 042
     Dates: start: 20080820
  3. FLUOROURACIL [Suspect]
     Dosage: (225 MG/M2)
     Dates: start: 20080820, end: 20080917
  4. RADIATION THERAPY [Suspect]
     Dosage: (5 DAYS/WEEK)
     Dates: start: 20080820, end: 20080918
  5. RADIATION THERAPY [Suspect]
     Dosage: (5 DAYS/WEEK)
     Dates: start: 20080929
  6. TPN [Suspect]
  7. CARBOPLATIN [Concomitant]
  8. TAXOL [Concomitant]

REACTIONS (7)
  - FEBRILE NEUTROPENIA [None]
  - HAEMATOCRIT DECREASED [None]
  - HAEMOGLOBIN DECREASED [None]
  - HYPOVOLAEMIA [None]
  - OESOPHAGITIS [None]
  - PLATELET COUNT DECREASED [None]
  - WHITE BLOOD CELL COUNT DECREASED [None]
